FAERS Safety Report 5227133-4 (Version None)
Quarter: 2007Q1

REPORT INFORMATION
  Report Type: 
  Country: None (occurrence: None)
  Receive Date: 20070130
  Receipt Date: 20070117
  Transmission Date: 20070707
  Serious: Yes (Life-Threatening)
  Sender: FDA-Public Use
  Company Number: 2007P1000051

PATIENT
  Age: 18 Year
  Sex: Male

DRUGS (3)
  1. BUSULFAN (BUSULFAN) [Suspect]
     Indication: STEM CELL TRANSPLANT
     Dosage: 0.8 MG/KG; Q6H; IV
     Route: 042
     Dates: start: 20060411, end: 20060415
  2. CYCLOPHOSPHAMIDE [Suspect]
     Indication: STEM CELL TRANSPLANT
     Dosage: 60 MG/KG; QD; IV
     Route: 042
     Dates: start: 20060416, end: 20060417
  3. MYCOPHENOLATE MOFETIL [Concomitant]

REACTIONS (4)
  - DYSPNOEA [None]
  - HYPOTENSION [None]
  - PYREXIA [None]
  - SEPSIS [None]
